FAERS Safety Report 9071853 (Version 1)
Quarter: 2013Q1

REPORT INFORMATION
  Report Type: Report from Study
  Country: US (occurrence: US)
  Receive Date: 20130129
  Receipt Date: 20130129
  Transmission Date: 20140127
  Serious: No
  Sender: FDA-Public Use
  Company Number: US-ABBOTT-12P-163-0934071-00

PATIENT
  Age: 64 Year
  Sex: Female

DRUGS (10)
  1. HUMIRA 40 MG/0.8 ML PEN [Suspect]
     Indication: RHEUMATOID ARTHRITIS
     Dates: start: 20120223
  2. METHOTREXATE [Concomitant]
     Indication: RHEUMATOID ARTHRITIS
  3. ARTHROTEC [Concomitant]
     Indication: OSTEOARTHRITIS
     Dosage: 75MG EVERY DAY
  4. ALLEGRA [Concomitant]
     Indication: SEASONAL ALLERGY
     Dosage: OVER-THE-COUNTER; DAILY
  5. CALCIUM [Concomitant]
     Indication: PRODUCT USED FOR UNKNOWN INDICATION
  6. OSTEO BI-FLEX [Concomitant]
     Indication: PRODUCT USED FOR UNKNOWN INDICATION
  7. WOMEN^S MULTIVITAMIN [Concomitant]
     Indication: PRODUCT USED FOR UNKNOWN INDICATION
     Dosage: DAILY
  8. OMEGA 3 [Concomitant]
     Indication: PRODUCT USED FOR UNKNOWN INDICATION
  9. UNKNOWN OMEGA SUPPLEMENT FOR THE EYE [Concomitant]
     Indication: SUPPLEMENTATION THERAPY
     Dosage: DAILY
  10. UNKNOWN OMEGA SUPPLEMENT FOR THE EYE [Concomitant]
     Indication: EYE DISORDER

REACTIONS (7)
  - Injection site urticaria [Recovering/Resolving]
  - Nausea [Recovering/Resolving]
  - Injection site pain [Recovering/Resolving]
  - Injection site erythema [Recovering/Resolving]
  - Injection site pruritus [Recovering/Resolving]
  - Injection site erythema [Recovering/Resolving]
  - Pain [Recovering/Resolving]
